FAERS Safety Report 13856054 (Version 1)
Quarter: 2017Q3

REPORT INFORMATION
  Report Type: Spontaneous
  Country: TR (occurrence: TR)
  Receive Date: 20170810
  Receipt Date: 20170810
  Transmission Date: 20171127
  Serious: Yes (Hospitalization)
  Sender: FDA-Public Use
  Company Number: PHHY2017TR114441

PATIENT
  Age: 43 Year
  Sex: Female

DRUGS (3)
  1. FOLINIC ACID [Concomitant]
     Active Substance: LEUCOVORIN
     Indication: GENETIC POLYMORPHISM
     Route: 048
  2. FOLINIC ACID [Concomitant]
     Active Substance: LEUCOVORIN
     Indication: GESTATIONAL TROPHOBLASTIC TUMOUR
     Dosage: 60 MG, CYCLIC, ON DAYS 2,4,6,8
     Route: 065
  3. METHOTREXATE. [Suspect]
     Active Substance: METHOTREXATE
     Indication: GESTATIONAL TROPHOBLASTIC TUMOUR
     Dosage: 75 MG, CYCLIC, ON DAYS 1,3,5,7
     Route: 065

REACTIONS (7)
  - Stomatitis [Unknown]
  - Nausea [Unknown]
  - Candida infection [Recovered/Resolved]
  - Mouth ulceration [Recovered/Resolved]
  - Oral disorder [Recovered/Resolved]
  - Skin lesion [Recovered/Resolved]
  - Skin ulcer [Recovered/Resolved]
